FAERS Safety Report 9916161 (Version 1)
Quarter: 2014Q1

REPORT INFORMATION
  Report Type: Spontaneous
  Country: US (occurrence: None)
  Receive Date: 20140220
  Receipt Date: 20140220
  Transmission Date: 20141002
  Serious: Yes (Other)
  Sender: FDA-Public Use
  Company Number: None

PATIENT
  Age: 32 Year
  Sex: Female
  Weight: 60 kg

DRUGS (1)
  1. MOTELUKAST [Suspect]
     Indication: ASTHMA
     Dosage: 1 PILL ONCE DAILY TAKEN BY MOUTH
     Route: 048
     Dates: start: 20101101, end: 20140121

REACTIONS (4)
  - Asthenia [None]
  - Negative thoughts [None]
  - Anxiety [None]
  - Abnormal behaviour [None]
